FAERS Safety Report 14861066 (Version 1)
Quarter: 2018Q2

REPORT INFORMATION
  Report Type: Other
  Country: GB (occurrence: GB)
  Receive Date: 20180508
  Receipt Date: 20180508
  Transmission Date: 20180711
  Serious: Yes (Other)
  Sender: FDA-Public Use
  Company Number: GB-GLENMARK PHARMACEUTICALS-2018GMK035088

PATIENT

DRUGS (4)
  1. ROPINIROLE HYDROCHLORIDE. [Suspect]
     Active Substance: ROPINIROLE HYDROCHLORIDE
     Indication: PRODUCT USED FOR UNKNOWN INDICATION
     Dosage: 5 DF, OD (1D)
     Route: 065
  2. ROPINIROLE HYDROCHLORIDE. [Suspect]
     Active Substance: ROPINIROLE HYDROCHLORIDE
     Dosage: UNK
     Route: 065
  3. EPIPEN (GABAPENTIN) [Concomitant]
     Dosage: UNK
  4. EPIPEN (GABAPENTIN) [Concomitant]
     Indication: PRODUCT USED FOR UNKNOWN INDICATION
     Dosage: UNK
     Route: 065

REACTIONS (11)
  - Nightmare [Unknown]
  - Impaired quality of life [Unknown]
  - Nausea [Unknown]
  - Hallucination [Unknown]
  - Therapeutic response unexpected [Unknown]
  - Drug dependence [Unknown]
  - Gambling disorder [Unknown]
  - Erectile dysfunction [Unknown]
  - Syncope [Unknown]
  - Malaise [Unknown]
  - Libido disorder [Unknown]
